FAERS Safety Report 23469870 (Version 2)
Quarter: 2024Q1

REPORT INFORMATION
  Report Type: Spontaneous
  Country: US (occurrence: US)
  Receive Date: 20240202
  Receipt Date: 20240307
  Transmission Date: 20240410
  Serious: No
  Sender: FDA-Public Use
  Company Number: US-BRISTOL-MYERS SQUIBB COMPANY-2024-017412

PATIENT
  Age: 73 Year
  Sex: Female
  Weight: 52.16 kg

DRUGS (2)
  1. REVLIMID [Suspect]
     Active Substance: LENALIDOMIDE
     Indication: Plasma cell myeloma
     Dosage: 3WKSON/1WKOFF
     Route: 048
     Dates: start: 20240101
  2. REVLIMID [Suspect]
     Active Substance: LENALIDOMIDE
     Dosage: 3WKSON/1WKOFF
     Route: 048

REACTIONS (2)
  - Diarrhoea [Recovering/Resolving]
  - Skin exfoliation [Not Recovered/Not Resolved]
